FAERS Safety Report 4970943-9 (Version None)
Quarter: 2006Q2

REPORT INFORMATION
  Report Type: 
  Country: None (occurrence: None)
  Receive Date: 20060411
  Receipt Date: 20060411
  Transmission Date: 20061013
  Serious: Yes (Hospitalization)
  Sender: FDA-Public Use
  Company Number: None

PATIENT
  Age: 41 Year
  Sex: Female
  Weight: 91.9 kg

DRUGS (1)
  1. ALPRAZOLAM [Suspect]

REACTIONS (1)
  - LETHARGY [None]
